FAERS Safety Report 5403645-5 (Version None)
Quarter: 2007Q3

REPORT INFORMATION
  Report Type: 
  Country: None (occurrence: None)
  Receive Date: 20070802
  Receipt Date: 20070724
  Transmission Date: 20080115
  Serious: Yes (Hospitalization)
  Sender: FDA-Public Use
  Company Number: PHBS2007JP11155

PATIENT
  Age: 62 Year
  Sex: Male
  Weight: 54 kg

DRUGS (6)
  1. NEORAL [Suspect]
     Indication: APLASTIC ANAEMIA
     Dosage: 200 MG/D
     Route: 048
     Dates: start: 20070514, end: 20070703
  2. PREDNISOLONE [Concomitant]
     Indication: APLASTIC ANAEMIA
     Dosage: 15 MG/D
     Route: 048
  3. DIFLUCAN [Concomitant]
     Dosage: 100 MG/D
     Route: 048
     Dates: start: 20070520
  4. OMEPRAZOLE [Concomitant]
     Dosage: 20 MG/D
     Route: 048
  5. ZEFFIX [Concomitant]
     Dosage: 100 MG/D
     Route: 048
  6. OLMESARTAN MEDOXOMIL [Concomitant]
     Dosage: 20 MG/D
     Route: 048

REACTIONS (9)
  - ANGER [None]
  - BLOOD UREA INCREASED [None]
  - CREATININE RENAL CLEARANCE DECREASED [None]
  - HYPONATRAEMIA [None]
  - IMMUNOSUPPRESSANT DRUG LEVEL INCREASED [None]
  - INSOMNIA [None]
  - LOGORRHOEA [None]
  - MANIA [None]
  - RENAL IMPAIRMENT [None]
